FAERS Safety Report 9560163 (Version 1)
Quarter: 2013Q3

REPORT INFORMATION
  Report Type: Spontaneous
  Country: US (occurrence: None)
  Receive Date: 20130906
  Receipt Date: 20130906
  Transmission Date: 20140515
  Serious: Yes (Hospitalization, Other)
  Sender: FDA-Public Use
  Company Number: 163-POMAL-13074708

PATIENT
  Age: 62 Year
  Sex: Female
  Weight: 103.42 kg

DRUGS (14)
  1. POMALYST [Suspect]
     Indication: PLASMA CELL MYELOMA
     Dosage: 2 MG, 21 IN 21 D, PO
     Route: 048
     Dates: start: 20130520, end: 20130523
  2. AMLODIPINE [Concomitant]
  3. BENADRYL (DIPHENHYDRAMINE HYDROCHLORIDE) [Concomitant]
  4. DEXAMETHASONE [Concomitant]
  5. DIAZEPAM [Concomitant]
  6. GAS RELIEF (DIMETICONE, ACTIVATED) [Concomitant]
  7. GRANISTRON [Concomitant]
  8. METOPROLOL TARTRATE [Concomitant]
  9. MIRALAX [Concomitant]
  10. OXYCODONE [Concomitant]
  11. PANTOPRAZOLE [Concomitant]
  12. TYLENOL (PARACETAMOL) [Concomitant]
  13. VITAMIN D (ERGOCALCIFEROL) [Concomitant]
  14. WARFARIN [Concomitant]

REACTIONS (5)
  - Malaise [None]
  - Nausea [None]
  - Vomiting [None]
  - Diarrhoea [None]
  - Oral candidiasis [None]
